FAERS Safety Report 6219814-0 (Version None)
Quarter: 2009Q2

REPORT INFORMATION
  Report Type: 
  Country: None (occurrence: None)
  Receive Date: 20090609
  Receipt Date: 20090526
  Transmission Date: 20091009
  Serious: Yes (Death)
  Sender: FDA-Public Use
  Company Number: TR-ELI_LILLY_AND_COMPANY-TR200906001322

PATIENT
  Age: 85 Year

DRUGS (3)
  1. FORTEO [Suspect]
     Indication: OSTEOPOROSIS
     Dosage: 20 , DAILY (1/D)
     Route: 058
  2. NORVASC [Concomitant]
     Indication: HYPERTENSION
     Dosage: UNK ONE TABLET DAILY
     Route: 048
  3. PREXIGE [Concomitant]
     Dosage: UNK 1/2 TABLET DAILY
     Route: 048

REACTIONS (1)
  - DEATH [None]
